FAERS Safety Report 6146396-4 (Version None)
Quarter: 2009Q2

REPORT INFORMATION
  Report Type: 
  Country: None (occurrence: None)
  Receive Date: 20090407
  Receipt Date: 20090327
  Transmission Date: 20091009
  Serious: Yes (Hospitalization, Other)
  Sender: FDA-Public Use
  Company Number: PHHY2008MX07545

PATIENT
  Age: 28 Year
  Sex: Female

DRUGS (1)
  1. TEGRETOL [Suspect]
     Indication: EPILEPSY
     Dosage: 200 MG, 2.5 TAB / DAY
     Route: 048
     Dates: start: 20000301, end: 20080901

REACTIONS (6)
  - CONVULSION [None]
  - HAEMATOMA [None]
  - HEAD INJURY [None]
  - SKIN GRAFT [None]
  - THERMAL BURN [None]
  - TOOTH LOSS [None]
